APPROVED DRUG PRODUCT: LACTATED RINGER'S IN PLASTIC CONTAINER
Active Ingredient: CALCIUM CHLORIDE; POTASSIUM CHLORIDE; SODIUM CHLORIDE; SODIUM LACTATE
Strength: 20MG/100ML;30MG/100ML;600MG/100ML;310MG/100ML
Dosage Form/Route: SOLUTION;IRRIGATION
Application: N019933 | Product #001
Applicant: BAXTER HEALTHCARE CORP
Approved: Aug 29, 1989 | RLD: No | RS: No | Type: DISCN